FAERS Safety Report 9467706 (Version 1)
Quarter: 2013Q3

REPORT INFORMATION
  Report Type: Spontaneous
  Country: US (occurrence: None)
  Receive Date: 20130819
  Receipt Date: 20130819
  Transmission Date: 20140515
  Serious: Yes (Other)
  Sender: FDA-Public Use
  Company Number: None

PATIENT
  Age: 58 Year
  Sex: Female
  Weight: 52.16 kg

DRUGS (1)
  1. CYMBALTA [Suspect]
     Indication: DEPRESSION
     Dosage: 90MG./DAY-120MG./DAY?ONE PILL?ONCE DAILY?TAKEN BY MOUTH
     Route: 048

REACTIONS (4)
  - Rectal haemorrhage [None]
  - Duodenal ulcer [None]
  - Colon cancer [None]
  - Large intestine polyp [None]
